FAERS Safety Report 7991436-0 (Version None)
Quarter: 2011Q4

REPORT INFORMATION
  Report Type: 
  Country: None (occurrence: None)
  Receive Date: 20111219
  Receipt Date: 20111208
  Transmission Date: 20120403
  Serious: Yes (Other)
  Sender: FDA-Public Use
  Company Number: US-US-EMD SERONO, INC.-7101090

PATIENT
  Sex: Female

DRUGS (12)
  1. ANTACIDS [Concomitant]
     Indication: OESOPHAGITIS
  2. NASACORT [Concomitant]
     Indication: ASTHMA
  3. ATENOLOL [Concomitant]
     Indication: HYPERTENSION
  4. FLEXERIL [Concomitant]
     Indication: FIBROMYALGIA
  5. PROVENTIL [Concomitant]
     Indication: ASTHMA
  6. REBIF [Suspect]
     Indication: MULTIPLE SCLEROSIS
     Route: 058
     Dates: start: 20091123
  7. PRIMIDONE [Concomitant]
     Indication: TREMOR
  8. OMEPRAZOLE [Concomitant]
     Indication: OESOPHAGITIS
  9. ALBUTEROL [Concomitant]
     Indication: ASTHMA
  10. CARTIA XT [Concomitant]
     Indication: HYPERTENSION
  11. ANTIBIOTICS [Concomitant]
     Indication: URINARY TRACT INFECTION
     Dates: start: 20070101
  12. LISINOPRIL AND HYDROCHLOROTHIAZIDE [Concomitant]
     Indication: HYPERTENSION

REACTIONS (5)
  - CYSTITIS NONINFECTIVE [None]
  - CHILLS [None]
  - URETHRAL DISORDER [None]
  - ADHESION [None]
  - URINARY TRACT INFECTION [None]
